FAERS Safety Report 7216147-0 (Version None)
Quarter: 2011Q1

REPORT INFORMATION
  Report Type: 
  Country: None (occurrence: None)
  Receive Date: 20110105
  Receipt Date: 20110105
  Transmission Date: 20110831
  Serious: Yes (Other)
  Sender: FDA-Public Use
  Company Number: None

PATIENT
  Age: 53 Year
  Sex: Female
  Weight: 56.4 kg

DRUGS (2)
  1. ZAFIRLUKAST [Suspect]
     Indication: ASTHMA
     Dosage: 20 MG BID ORAL
     Route: 048
     Dates: start: 20101220, end: 20101227
  2. ALBUTEROL [Concomitant]

REACTIONS (2)
  - DRUG INEFFECTIVE [None]
  - PRODUCT SUBSTITUTION ISSUE [None]
